FAERS Safety Report 23720114 (Version 2)
Quarter: 2024Q2

REPORT INFORMATION
  Report Type: Spontaneous
  Country: US (occurrence: US)
  Receive Date: 20240408
  Receipt Date: 20240410
  Transmission Date: 20240716
  Serious: Yes (Life-Threatening, Other)
  Sender: FDA-Public Use
  Company Number: US-PFIZER INC-PV202400043265

PATIENT
  Age: 63 Year
  Sex: Female

DRUGS (1)
  1. VERAPAMIL HCL [Suspect]
     Active Substance: VERAPAMIL HYDROCHLORIDE
     Dosage: 240 MG, 1X/DAY

REACTIONS (8)
  - Toxicity to various agents [Recovered/Resolved]
  - Cardiac dysfunction [Recovered/Resolved]
  - Distributive shock [Recovered/Resolved]
  - Bradycardia [Recovered/Resolved]
  - Hypotension [Recovered/Resolved]
  - Lethargy [Recovered/Resolved]
  - Ventricular arrhythmia [Recovered/Resolved]
  - Bifascicular block [Recovered/Resolved]
